FAERS Safety Report 4558149-9 (Version None)
Quarter: 2005Q1

REPORT INFORMATION
  Report Type: 
  Country: None (occurrence: None)
  Receive Date: 20050103
  Receipt Date: 20041012
  Transmission Date: 20050727
  Serious: Yes (Other)
  Sender: FDA-Public Use
  Company Number: 2004UW19763

PATIENT
  Age: 61 Year
  Sex: Male
  Weight: 108.8633 kg

DRUGS (2)
  1. CRESTOR [Suspect]
     Indication: DYSLIPIDAEMIA
     Dosage: 5 MG DAILY PO
     Route: 048
     Dates: start: 20030801, end: 20040925
  2. ZETIA [Suspect]
     Indication: DYSLIPIDAEMIA
     Dosage: 10 MG QD PO
     Route: 048
     Dates: start: 20040801, end: 20040925

REACTIONS (2)
  - DRUG INTERACTION [None]
  - MYALGIA [None]
